FAERS Safety Report 7920379 (Version 5)
Quarter: 2018Q3

REPORT INFORMATION
  Report Type: Spontaneous
  Country: FR (occurrence: FR)
  Receive Date: 20110429
  Receipt Date: 20180913
  Transmission Date: 20181010
  Serious: Yes (Hospitalization)
  Sender: FDA-Public Use
  Company Number: FR-SANOFI-AVENTIS-2011SA024590

PATIENT
  Age: 72 Year
  Sex: Male
  Weight: 81 kg

DRUGS (6)
  1. CRESTOR [Concomitant]
     Active Substance: ROSUVASTATIN CALCIUM
     Indication: DYSLIPIDAEMIA
     Dosage: UNK UNK,UNK
     Route: 048
     Dates: start: 2006
  2. FLECAINE [Concomitant]
     Active Substance: FLECAINIDE
     Indication: CARDIOMYOPATHY
     Dosage: UNK UNK,UNK
     Route: 065
     Dates: end: 201102
  3. LORAZEPAM. [Concomitant]
     Active Substance: LORAZEPAM
     Indication: INSOMNIA
     Dosage: UNK UNK,UNK
     Route: 048
     Dates: start: 201010
  4. MULTAQ [Suspect]
     Active Substance: DRONEDARONE
     Indication: ATRIAL FIBRILLATION
     Dosage: 400 MG,QD
     Route: 048
     Dates: start: 20110215, end: 20110222
  5. HYDROCHLOROTHIAZIDE;VALSARTAN [Concomitant]
     Indication: HYPERTENSION
     Dosage: UNK UNK,UNK
     Route: 048
     Dates: start: 2006
  6. KARDEGIC [Concomitant]
     Active Substance: ASPIRIN DL-LYSINE
     Indication: THROMBOSIS PROPHYLAXIS
     Dosage: 160 MG,UNK
     Route: 048
     Dates: start: 2006

REACTIONS (5)
  - Pyrexia [Recovered/Resolved]
  - Underdose [Unknown]
  - Epidermal necrosis [Recovered/Resolved]
  - Rash maculo-papular [Recovered/Resolved]
  - Toxic skin eruption [Recovered/Resolved]

NARRATIVE: CASE EVENT DATE: 20110219
